FAERS Safety Report 9849001 (Version 2)
Quarter: 2014Q4

REPORT INFORMATION
  Report Type: Spontaneous
  Country: US (occurrence: None)
  Receive Date: 20131226
  Receipt Date: 20141030
  Transmission Date: 20150529
  Serious: Yes (Hospitalization)
  Sender: FDA-Public Use
  Company Number: PHEH2013US018432

PATIENT
  Age: 49 Year
  Sex: Female

DRUGS (5)
  1. GABAPENTIN (GABAPENTIN) [Concomitant]
     Active Substance: GABAPENTIN
  2. LISINOPRIL (LISINOPRIL) [Concomitant]
     Active Substance: LISINOPRIL
  3. AMBIEN [Concomitant]
     Active Substance: ZOLPIDEM TARTRATE
  4. TRILEPTAL [Suspect]
     Active Substance: OXCARBAZEPINE
  5. CLOZAPINE (CLOZAPINE) [Concomitant]
     Active Substance: CLOZAPINE

REACTIONS (9)
  - Feeling abnormal [None]
  - Dyspnoea [None]
  - Asthenia [None]
  - Abdominal pain upper [None]
  - Tremor [None]
  - Dysphagia [None]
  - Blood sodium decreased [None]
  - Fatigue [None]
  - Myalgia [None]
